FAERS Safety Report 19644401 (Version 1)
Quarter: 2021Q3

REPORT INFORMATION
  Report Type: Spontaneous
  Country: US (occurrence: US)
  Receive Date: 20210801
  Receipt Date: 20210801
  Transmission Date: 20211014
  Serious: No
  Sender: FDA-Public Use
  Company Number: US-AMGEN-USASP2021113513

PATIENT
  Age: 67 Year
  Sex: Female

DRUGS (18)
  1. CLINDAMYCIN. [Concomitant]
     Active Substance: CLINDAMYCIN
  2. LEVOTHYROXIN [Concomitant]
     Active Substance: LEVOTHYROXINE
  3. POTASSIUM CHLORIDE. [Concomitant]
     Active Substance: POTASSIUM CHLORIDE
  4. ONDANSETRON ODT [Concomitant]
     Active Substance: ONDANSETRON
  5. DOXYCYCLINE HYCLATE. [Concomitant]
     Active Substance: DOXYCYCLINE HYCLATE
  6. ALPRAZOLAM. [Concomitant]
     Active Substance: ALPRAZOLAM
  7. TORSEMIDE. [Concomitant]
     Active Substance: TORSEMIDE
  8. SULFAMETHOXAZOLE AND TRIMETHOPRIM [Concomitant]
     Active Substance: SULFAMETHOXAZOLE\TRIMETHOPRIM
  9. WARFARIN [Concomitant]
     Active Substance: WARFARIN
  10. LITHIUM CARBONATE. [Concomitant]
     Active Substance: LITHIUM CARBONATE
  11. CLOBETASOL [Concomitant]
     Active Substance: CLOBETASOL
  12. OTEZLA [Suspect]
     Active Substance: APREMILAST
     Indication: PSORIASIS
     Dosage: 30 MILLIGRAM, BID
     Route: 048
     Dates: start: 20210505
  13. UBRELVY [Concomitant]
     Active Substance: UBROGEPANT
  14. ARIPIPRAZOLE. [Concomitant]
     Active Substance: ARIPIPRAZOLE
  15. KETOCONAZOLE. [Concomitant]
     Active Substance: KETOCONAZOLE
  16. PREVENT [TINIDAZOLE] [Concomitant]
  17. ALBUTEROL [SALBUTAMOL] [Concomitant]
     Active Substance: ALBUTEROL
  18. BETAMETHASONE. [Concomitant]
     Active Substance: BETAMETHASONE

REACTIONS (1)
  - Psoriasis [Not Recovered/Not Resolved]

NARRATIVE: CASE EVENT DATE: 2021
